FAERS Safety Report 20531981 (Version 1)
Quarter: 2022Q1

REPORT INFORMATION
  Report Type: Spontaneous
  Country: GB (occurrence: GB)
  Receive Date: 20220301
  Receipt Date: 20220301
  Transmission Date: 20220423
  Serious: Yes (Hospitalization, Other)
  Sender: FDA-Public Use
  Company Number: GB-009507513-2202GBR003817

PATIENT
  Sex: Female

DRUGS (5)
  1. CARBOPLATIN [Suspect]
     Active Substance: CARBOPLATIN
     Indication: Lung adenocarcinoma
     Dosage: UNK
     Dates: start: 202011
  2. CARBOPLATIN [Suspect]
     Active Substance: CARBOPLATIN
     Dosage: RE-CHALLENGED WITH 4 CYCLES
     Dates: start: 202109
  3. KEYTRUDA [Suspect]
     Active Substance: PEMBROLIZUMAB
     Indication: Lung adenocarcinoma
     Dosage: UNK
     Dates: start: 202011
  4. PEMETREXED [Suspect]
     Active Substance: PEMETREXED
     Indication: Lung adenocarcinoma
     Dosage: UNK
     Dates: start: 202011
  5. PEMETREXED [Suspect]
     Active Substance: PEMETREXED
     Dosage: RE-CHALLENGED WITH 4 CYCLES
     Dates: start: 202109

REACTIONS (2)
  - Neutropenic sepsis [Unknown]
  - Neoplasm progression [Unknown]

NARRATIVE: CASE EVENT DATE: 20201101
